FAERS Safety Report 19296590 (Version 2)
Quarter: 2021Q2

REPORT INFORMATION
  Report Type: Spontaneous
  Country: US (occurrence: US)
  Receive Date: 20210524
  Receipt Date: 20210528
  Transmission Date: 20210717
  Serious: No
  Sender: FDA-Public Use
  Company Number: US-ALLERGAN-2119739US

PATIENT
  Sex: Female

DRUGS (1)
  1. KYBELLA [Suspect]
     Active Substance: DEOXYCHOLIC ACID
     Indication: FAT TISSUE INCREASED
     Dosage: 2 ML, SINGLE
     Route: 058
     Dates: start: 20210513, end: 20210513

REACTIONS (4)
  - Adverse event [Recovered/Resolved]
  - VIIth nerve injury [Recovered/Resolved]
  - Injection site swelling [Recovered/Resolved]
  - Facial paresis [Recovered/Resolved]

NARRATIVE: CASE EVENT DATE: 20210517
